FAERS Safety Report 6785008-3 (Version None)
Quarter: 2010Q2

REPORT INFORMATION
  Report Type: 
  Country: None (occurrence: None)
  Receive Date: 20100622
  Receipt Date: 20100609
  Transmission Date: 20101027
  Serious: Yes (Hospitalization)
  Sender: FDA-Public Use
  Company Number: PL-ELI_LILLY_AND_COMPANY-PL201006005002

PATIENT
  Sex: Male
  Weight: 50 kg

DRUGS (3)
  1. GEMCITABINE HYDROCHLORIDE [Suspect]
     Indication: NON-SMALL CELL LUNG CANCER
     Dosage: 1875 MG, 2 IN 3 WEEK
     Route: 042
     Dates: start: 20100531
  2. CISPLATIN [Suspect]
     Indication: NON-SMALL CELL LUNG CANCER
     Dosage: 112 MG, ONE IN THREE WEEKS
     Route: 042
     Dates: start: 20100531
  3. OTHER PHARMA COMPANY INV DRUG [Suspect]
     Indication: NON-SMALL CELL LUNG CANCER
     Dosage: 800 MG, 2 IN 3 WEEKS
     Route: 042
     Dates: start: 20100531

REACTIONS (2)
  - HAEMOPTYSIS [None]
  - PYREXIA [None]
